FAERS Safety Report 22977548 (Version 2)
Quarter: 2023Q4

REPORT INFORMATION
  Report Type: Spontaneous
  Country: US (occurrence: US)
  Receive Date: 20230925
  Receipt Date: 20231011
  Transmission Date: 20240110
  Serious: Yes (Life-Threatening, Hospitalization, Other)
  Sender: FDA-Public Use
  Company Number: US-SANDOZ-SDZ2023US031969

PATIENT
  Age: 67 Year
  Sex: Male

DRUGS (2)
  1. ACETAMINOPHEN [Suspect]
     Active Substance: ACETAMINOPHEN
     Indication: Product used for unknown indication
     Dosage: 24.5 G
     Route: 065
  2. AMIFAMPRIDINE [Suspect]
     Active Substance: AMIFAMPRIDINE
     Indication: Product used for unknown indication
     Dosage: 100 MG
     Route: 065

REACTIONS (7)
  - Suicide attempt [Recovering/Resolving]
  - Pulseless electrical activity [Unknown]
  - Tachycardia [Unknown]
  - Hypertension [Unknown]
  - Tachypnoea [Unknown]
  - Hyperhidrosis [Unknown]
  - Intentional overdose [Recovering/Resolving]
